FAERS Safety Report 8603743-9 (Version None)
Quarter: 2012Q3

REPORT INFORMATION
  Report Type: 
  Country: None (occurrence: None)
  Receive Date: 20120817
  Receipt Date: 20120611
  Transmission Date: 20120928
  Serious: No
  Sender: FDA-Public Use
  Company Number: US-009507513-2012SP033487

PATIENT

DRUGS (2)
  1. CLARITIN [Suspect]
     Indication: MEDICAL OBSERVATION
  2. CLARITIN [Suspect]
     Indication: PRURITUS
     Dosage: 10 MG, UNKNOWN
     Route: 048
     Dates: start: 20120501

REACTIONS (1)
  - THERAPEUTIC PRODUCT INEFFECTIVE [None]
